FAERS Safety Report 23772673 (Version 1)
Quarter: 2024Q2

REPORT INFORMATION
  Report Type: Report from Study
  Country: TR (occurrence: TR)
  Receive Date: 20240423
  Receipt Date: 20240423
  Transmission Date: 20240716
  Serious: Yes (Other)
  Sender: FDA-Public Use
  Company Number: TR-JNJFOC-20240437137

PATIENT
  Sex: Male

DRUGS (2)
  1. ZYTIGA [Suspect]
     Active Substance: ABIRATERONE ACETATE
     Indication: Prostate cancer
     Route: 048
  2. ENZALUTAMIDE [Suspect]
     Active Substance: ENZALUTAMIDE
     Indication: Prostate cancer
     Route: 065

REACTIONS (14)
  - Cardiac failure [Unknown]
  - Atrial fibrillation [Unknown]
  - Ventricular arrhythmia [Unknown]
  - Pulmonary embolism [Unknown]
  - Cerebral infarction [Unknown]
  - Cardiomyopathy [Unknown]
  - Myocardial infarction [Unknown]
  - Myocardial ischaemia [Unknown]
  - Arteriosclerosis [Unknown]
  - Aortic aneurysm [Unknown]
  - Hypotension [Unknown]
  - Tachycardia paroxysmal [Unknown]
  - Hypertension [Unknown]
  - Peripheral vascular disorder [Unknown]
